FAERS Safety Report 22119276 (Version 1)
Quarter: 2023Q1

REPORT INFORMATION
  Report Type: Spontaneous
  Country: US (occurrence: US)
  Receive Date: 20230321
  Receipt Date: 20230321
  Transmission Date: 20230418
  Serious: No
  Sender: FDA-Public Use
  Company Number: US-TARO PHARMACEUTICALS USA INC.-2022TAR00541

PATIENT

DRUGS (2)
  1. ENALAPRIL MALEATE [Suspect]
     Active Substance: ENALAPRIL MALEATE
     Indication: Blood pressure abnormal
     Dosage: 10 MILLIGRAM, BID, YEARS AGO
     Route: 048
  2. RALOXIFENE [Concomitant]
     Active Substance: RALOXIFENE
     Indication: Osteoporosis
     Dosage: 60 MILLIGRAM, QD, YEARS AGO
     Route: 048

REACTIONS (3)
  - Granuloma annulare [Unknown]
  - Therapeutic product effect incomplete [Unknown]
  - Product use issue [Unknown]
